FAERS Safety Report 7580595-X (Version None)
Quarter: 2011Q2

REPORT INFORMATION
  Report Type: 
  Country: None (occurrence: None)
  Receive Date: 20110629
  Receipt Date: 20110621
  Transmission Date: 20111010
  Serious: Yes (Hospitalization)
  Sender: FDA-Public Use
  Company Number: B0728276A

PATIENT
  Sex: Male
  Weight: 2.34 kg

DRUGS (1)
  1. LAMICTAL [Suspect]
     Indication: EPILEPSY
     Dosage: 100MG PER DAY
     Route: 064

REACTIONS (11)
  - HAEMATEMESIS [None]
  - MILK ALLERGY [None]
  - CYANOSIS NEONATAL [None]
  - DRUG EXPOSURE VIA BREAST MILK [None]
  - APNOEA [None]
  - HYPERBILIRUBINAEMIA [None]
  - HAEMATOCHEZIA [None]
  - JAUNDICE [None]
  - SMALL FOR DATES BABY [None]
  - GASTROINTESTINAL HAEMORRHAGE [None]
  - DRUG EXPOSURE DURING PREGNANCY [None]
